FAERS Safety Report 10302958 (Version 2)
Quarter: 2014Q3

REPORT INFORMATION
  Report Type: Spontaneous
  Country: CN (occurrence: None)
  Receive Date: 20140710
  Receipt Date: 20140731
  Transmission Date: 20150326
  Serious: Yes (Death)
  Sender: FDA-Public Use
  Company Number: SYM-2014-22994

PATIENT
  Age: 43 Year
  Sex: Male

DRUGS (3)
  1. FLUOROURACIL (FLUOROURACIL) [Suspect]
     Active Substance: FLUOROURACIL
     Indication: HEPATIC CANCER METASTATIC
     Route: 040
     Dates: start: 20120917
  2. CALCIUM FOLINATE [Suspect]
     Active Substance: LEUCOVORIN CALCIUM
     Indication: HEPATIC CANCER METASTATIC
     Route: 041
     Dates: start: 20120917
  3. OXALIPLATIN (OXALIPLATIN) [Suspect]
     Active Substance: OXALIPLATIN
     Indication: HEPATIC CANCER METASTATIC
     Route: 041
     Dates: start: 20120917, end: 20120917

REACTIONS (4)
  - Malignant neoplasm progression [None]
  - Hepatitis B [None]
  - Hepatic cancer metastatic [None]
  - Hepatic failure [None]

NARRATIVE: CASE EVENT DATE: 20121114
